FAERS Safety Report 26160310 (Version 1)
Quarter: 2025Q4

REPORT INFORMATION
  Report Type: Spontaneous
  Country: US (occurrence: US)
  Receive Date: 20251216
  Receipt Date: 20251216
  Transmission Date: 20260118
  Serious: Yes (Death, Hospitalization, Other)
  Sender: AMNEAL
  Company Number: US-AMNEAL PHARMACEUTICALS-2025-AMRX-04776

PATIENT
  Age: 57 Year
  Sex: Female

DRUGS (1)
  1. BUPROPION HYDROCHLORIDE SR [Suspect]
     Active Substance: BUPROPION HYDROCHLORIDE
     Indication: Depression
     Dosage: 12 G OF EXTENDED?RELEASE BUPROPION
     Route: 065

REACTIONS (8)
  - Cardiogenic shock [Fatal]
  - Circulatory collapse [Fatal]
  - Metabolic acidosis [Unknown]
  - Intentional overdose [Unknown]
  - Toxicity to various agents [Unknown]
  - Respiratory failure [Fatal]
  - Seizure [Unknown]
  - Cardiac arrest [Fatal]
